FAERS Safety Report 7779960-7 (Version None)
Quarter: 2011Q3

REPORT INFORMATION
  Report Type: 
  Country: None (occurrence: None)
  Receive Date: 20110927
  Receipt Date: 20110919
  Transmission Date: 20111222
  Serious: Yes (Death)
  Sender: FDA-Public Use
  Company Number: US-UCBSA-040840

PATIENT
  Age: 53 Year
  Sex: Male

DRUGS (3)
  1. CARISOPRODOL [Suspect]
  2. ACETYLCYSTEINE [Suspect]
     Indication: TOXICITY TO VARIOUS AGENTS
     Dosage: PRESUMED DOSE 150 MG/KG
     Route: 042
  3. ACETAMINOPHEN AND HYDROCODONE BITARTRATE [Suspect]

REACTIONS (8)
  - TOXICITY TO VARIOUS AGENTS [None]
  - ANAPHYLACTOID REACTION [None]
  - OVERDOSE [None]
  - ACUTE MYOCARDIAL INFARCTION [None]
  - BELLIGERENCE [None]
  - MYOCARDIAL INFARCTION [None]
  - MENTAL STATUS CHANGES [None]
  - MIOSIS [None]
